FAERS Safety Report 10874084 (Version 4)
Quarter: 2015Q4

REPORT INFORMATION
  Report Type: Spontaneous
  Country: DK (occurrence: JP)
  Receive Date: 20150227
  Receipt Date: 20151109
  Transmission Date: 20160304
  Serious: Yes (Hospitalization)
  Sender: FDA-Public Use
  Company Number: JP-FRI-1000074472

PATIENT
  Age: 0 Day
  Sex: Male
  Weight: 2.69 kg

DRUGS (6)
  1. MEILAX [Suspect]
     Active Substance: ETHYL LOFLAZEPATE
     Dosage: 1 MG
     Route: 064
     Dates: start: 20150113, end: 20150126
  2. LEXAPRO [Suspect]
     Active Substance: ESCITALOPRAM OXALATE
     Dosage: 10 MG
     Route: 064
     Dates: start: 20150113, end: 20150126
  3. SODIUM RABEPRAZOLE [Concomitant]
     Active Substance: RABEPRAZOLE SODIUM
     Indication: PRODUCT USED FOR UNKNOWN INDICATION
     Dosage: 10 MG
     Route: 064
     Dates: start: 201406
  4. MEILAX [Suspect]
     Active Substance: ETHYL LOFLAZEPATE
     Indication: PRODUCT USED FOR UNKNOWN INDICATION
     Dosage: 1 MG
     Route: 064
     Dates: start: 201406
  5. SODIUM RABEPRAZOLE [Concomitant]
     Active Substance: RABEPRAZOLE SODIUM
     Dosage: 10 MG
     Route: 064
     Dates: start: 201501, end: 20150126
  6. LEXAPRO [Suspect]
     Active Substance: ESCITALOPRAM OXALATE
     Indication: PRODUCT USED FOR UNKNOWN INDICATION
     Dosage: 10 MG
     Route: 064
     Dates: start: 201406

REACTIONS (4)
  - Hypotonia [Recovered/Resolved]
  - Neonatal oversedation [Recovered/Resolved]
  - Foetal exposure during pregnancy [Unknown]
  - Respiratory disorder neonatal [Recovering/Resolving]

NARRATIVE: CASE EVENT DATE: 20150127
